FAERS Safety Report 24219634 (Version 1)
Quarter: 2024Q3

REPORT INFORMATION
  Report Type: Spontaneous
  Country: CN (occurrence: CN)
  Receive Date: 20240817
  Receipt Date: 20240817
  Transmission Date: 20241017
  Serious: Yes (Hospitalization, Other)
  Sender: ELI LILLY AND CO
  Company Number: CN-ELI_LILLY_AND_COMPANY-CN202408006672

PATIENT
  Age: 79 Year
  Sex: Female
  Weight: 60 kg

DRUGS (2)
  1. BARICITINIB [Suspect]
     Active Substance: BARICITINIB
     Indication: Rheumatoid arthritis
     Dosage: 2 MG, DAILY
     Route: 048
     Dates: start: 20240508, end: 20240803
  2. HYDROXYCHLOROQUINE SULFATE [Suspect]
     Active Substance: HYDROXYCHLOROQUINE SULFATE
     Indication: Rheumatoid arthritis
     Dosage: 0.2 G, DAILY
     Route: 048
     Dates: start: 20240508, end: 20240803

REACTIONS (9)
  - Dyspnoea [Recovering/Resolving]
  - Muscle twitching [Recovering/Resolving]
  - Epilepsy [Recovering/Resolving]
  - Tremor [Recovering/Resolving]
  - Rheumatoid arthritis [Recovering/Resolving]
  - Cerebral atrophy [Recovering/Resolving]
  - Lacunar infarction [Recovering/Resolving]
  - Mood altered [Recovering/Resolving]
  - Fatigue [Recovering/Resolving]

NARRATIVE: CASE EVENT DATE: 20240803
